FAERS Safety Report 5000532-1 (Version None)
Quarter: 2006Q2

REPORT INFORMATION
  Report Type: 
  Country: None (occurrence: None)
  Receive Date: 20060512
  Receipt Date: 20050503
  Transmission Date: 20061013
  Serious: Yes (Hospitalization)
  Sender: FDA-Public Use
  Company Number: US-BRISTOL-MYERS SQUIBB COMPANY-12954194

PATIENT
  Age: 51 Year
  Sex: Male

DRUGS (1)
  1. CYTOXAN [Suspect]
     Indication: MULTIPLE SCLEROSIS
     Dates: start: 19990301

REACTIONS (2)
  - FEBRILE NEUTROPENIA [None]
  - URINARY TRACT INFECTION [None]
